FAERS Safety Report 11830633 (Version 1)
Quarter: 2015Q4

REPORT INFORMATION
  Report Type: Spontaneous
  Country: JP (occurrence: JP)
  Receive Date: 20151214
  Receipt Date: 20151214
  Transmission Date: 20160305
  Serious: Yes (Life-Threatening)
  Sender: FDA-Public Use
  Company Number: JP-009507513-1504JPN015354

PATIENT
  Age: 62 Year
  Sex: Male
  Weight: 65 kg

DRUGS (13)
  1. SODIUM FERROUS CITRATE [Concomitant]
     Active Substance: SODIUM FERROUS CITRATE
     Dosage: DAILY DOSAGE UNKNOWN
     Route: 048
  2. CUBICIN [Suspect]
     Active Substance: DAPTOMYCIN
     Indication: DIABETIC GANGRENE
  3. APIDRA [Concomitant]
     Active Substance: INSULIN GLULISINE
     Indication: TYPE 2 DIABETES MELLITUS
     Dosage: UNK, QD
     Route: 058
  4. BAYASPIRIN [Concomitant]
     Active Substance: ASPIRIN
     Indication: PERIPHERAL ARTERIAL OCCLUSIVE DISEASE
     Dosage: 1 DF ONCE A DAY
     Route: 048
  5. LANTUS [Concomitant]
     Active Substance: INSULIN GLARGINE
     Indication: TYPE 2 DIABETES MELLITUS
     Dosage: UNK, QD
     Route: 058
     Dates: start: 2013
  6. ARTIST [Concomitant]
     Active Substance: CARVEDILOL
     Indication: HYPERTENSION
     Dosage: 2 DF, ONCE A DAY
     Route: 048
  7. FOSFOMYCIN SODIUM [Concomitant]
     Active Substance: FOSFOMYCIN SODIUM
     Indication: DIABETIC GANGRENE
     Dosage: 200 MG, TWICE A DAY
     Route: 041
     Dates: start: 20140529, end: 20140602
  8. CUBICIN [Suspect]
     Active Substance: DAPTOMYCIN
     Indication: OFF LABEL USE
  9. CRAVIT [Suspect]
     Active Substance: LEVOFLOXACIN
     Indication: STAPHYLOCOCCAL INFECTION
     Dosage: 500 MG, ONCE DAILY
     Route: 041
     Dates: start: 20140603, end: 20140626
  10. CUBICIN [Suspect]
     Active Substance: DAPTOMYCIN
     Indication: STAPHYLOCOCCAL INFECTION
     Dosage: 350 MG/KG, ONCE DAILY
     Route: 041
     Dates: start: 20140605, end: 20140701
  11. REZALTAS [Concomitant]
     Active Substance: AZELNIDIPINE\OLMESARTAN MEDOXOMIL
     Indication: HYPERTENSION
     Dosage: 1 DF, ONCE A DAY
     Route: 048
  12. ACETAMINOPHEN. [Concomitant]
     Active Substance: ACETAMINOPHEN
     Dosage: DAILY DOSAGE UNKNOWN, FORMULATION POR
     Route: 048
  13. OLMETEC [Concomitant]
     Active Substance: OLMESARTAN MEDOXOMIL
     Indication: HYPERTENSION
     Dosage: 1 DF, ONCE A DAY
     Route: 048

REACTIONS (2)
  - Off label use [Unknown]
  - Eosinophilic pneumonia acute [Recovered/Resolved]

NARRATIVE: CASE EVENT DATE: 201406
